FAERS Safety Report 20685291 (Version 1)
Quarter: 2022Q2

REPORT INFORMATION
  Report Type: Spontaneous
  Country: US (occurrence: None)
  Receive Date: 20220406
  Receipt Date: 20220406
  Transmission Date: 20220721
  Serious: Yes (Life-Threatening, Hospitalization, Disabling, Other)
  Sender: FDA-Public Use
  Company Number: None

PATIENT
  Age: 30 Year
  Sex: Male
  Weight: 96.75 kg

DRUGS (4)
  1. ONDANSETRON HYDROCHLORIDE [Suspect]
     Active Substance: ONDANSETRON HYDROCHLORIDE
     Indication: Nausea
     Route: 048
  2. BUPROPION HYDROCHLORIDE [Suspect]
     Active Substance: BUPROPION HYDROCHLORIDE
     Indication: Gastrointestinal disorder
     Route: 048
  3. DICYCLOMINE HYDROCHLORIDE [Suspect]
     Active Substance: DICYCLOMINE HYDROCHLORIDE
     Indication: Gastrointestinal disorder
     Dosage: OTHER FREQUENCY : 3 MONTH;?
     Route: 048
  4. CPAP Machine [Concomitant]

REACTIONS (9)
  - Tremor [None]
  - Agitation [None]
  - Irritability [None]
  - Homicide [None]
  - Sleep apnoea syndrome [None]
  - Depression [None]
  - Insomnia [None]
  - Aggression [None]
  - Psychotic disorder [None]

NARRATIVE: CASE EVENT DATE: 20201118
